FAERS Safety Report 16325787 (Version 2)
Quarter: 2019Q2

REPORT INFORMATION
  Report Type: Spontaneous
  Country: US (occurrence: US)
  Receive Date: 20190517
  Receipt Date: 20190521
  Transmission Date: 20190711
  Serious: Yes (Hospitalization, Other)
  Sender: FDA-Public Use
  Company Number: US-GILEAD-2019-0398835

PATIENT
  Age: 42 Year
  Sex: Male

DRUGS (5)
  1. DESCOVY [Suspect]
     Active Substance: EMTRICITABINE\TENOFOVIR ALAFENAMIDE FUMARATE
     Indication: HIV INFECTION
     Route: 065
  2. SOFOSBUVIR;VELPATASVIR [Concomitant]
     Active Substance: SOFOSBUVIR\VELPATASVIR
  3. DOLUTEGRAVIR [Suspect]
     Active Substance: DOLUTEGRAVIR
     Indication: HIV INFECTION
     Dosage: UNK
     Route: 065
  4. DOLUTEGRAVIR [Suspect]
     Active Substance: DOLUTEGRAVIR
     Indication: HEPATITIS B
  5. DOLUTEGRAVIR [Suspect]
     Active Substance: DOLUTEGRAVIR
     Indication: HEPATITIS C
     Dosage: UNK
     Route: 065

REACTIONS (10)
  - Lymphadenopathy [Unknown]
  - Oculogyric crisis [Unknown]
  - Loss of consciousness [Unknown]
  - Granuloma [Unknown]
  - Muscle twitching [Unknown]
  - Vasogenic cerebral oedema [Recovering/Resolving]
  - Seizure [Unknown]
  - Immune reconstitution inflammatory syndrome associated tuberculosis [Recovering/Resolving]
  - Fatigue [Unknown]
  - Tongue injury [Unknown]
